FAERS Safety Report 6643819 (Version 4)
Quarter: 2013Q2

REPORT INFORMATION
  Report Type: Report from Study
  Country: US (occurrence: US)
  Receive Date: 20080519
  Receipt Date: 20130411
  Transmission Date: 20140414
  Serious: Yes (Other)
  Sender: FDA-Public Use
  Company Number: US-PFIZER INC-2008041660

PATIENT
  Age: 58 Year
  Sex: Female

DRUGS (11)
  1. CHANTIX [Suspect]
     Indication: SMOKING CESSATION THERAPY
     Dosage: UNK
     Route: 048
     Dates: start: 200803
  2. CHANTIX [Suspect]
     Dosage: UNK
     Route: 048
     Dates: start: 20100903, end: 201009
  3. CHANTIX [Suspect]
     Dosage: 1 MG, 2X/DAY
     Route: 048
     Dates: start: 201009
  4. CHANTIX [Suspect]
     Dosage: 0.5 MG DAILY
     Route: 048
  5. CHANTIX [Suspect]
     Dosage: UNK
     Route: 048
  6. NEURONTIN [Concomitant]
     Dosage: 800 MG, 4X/DAY
  7. CYMBALTA [Concomitant]
     Dosage: 60 MG, 1X/DAY
  8. ALBUTEROL [Concomitant]
     Indication: CHRONIC OBSTRUCTIVE PULMONARY DISEASE
     Dosage: 2.5 MG, 4X/DAY
  9. ALBUTEROL [Concomitant]
     Indication: EMPHYSEMA
  10. ADVAIR [Concomitant]
     Indication: CHRONIC OBSTRUCTIVE PULMONARY DISEASE
     Dosage: 250 UG, 2X/DAY
  11. ADVAIR [Concomitant]
     Indication: EMPHYSEMA

REACTIONS (11)
  - Depression [Unknown]
  - Dermatitis bullous [Not Recovered/Not Resolved]
  - Agitation [Unknown]
  - Weight decreased [Unknown]
  - Nausea [Unknown]
  - Rash [Not Recovered/Not Resolved]
  - Headache [Not Recovered/Not Resolved]
  - Abnormal dreams [Unknown]
  - Drug withdrawal syndrome [Unknown]
  - Irritability [Unknown]
  - Thinking abnormal [Unknown]
